FAERS Safety Report 14690016 (Version 1)
Quarter: 2018Q1

REPORT INFORMATION
  Report Type: Spontaneous
  Country: US (occurrence: US)
  Receive Date: 20180328
  Receipt Date: 20180328
  Transmission Date: 20180509
  Serious: Yes (Other)
  Sender: FDA-Public Use
  Company Number: US-BAYER-2018-057027

PATIENT
  Sex: Female

DRUGS (2)
  1. MIRENA [Suspect]
     Active Substance: LEVONORGESTREL
     Dosage: 20 MCG/24HR, CONT
     Route: 015
  2. PROVIGIL [Interacting]
     Active Substance: MODAFINIL
     Indication: NARCOLEPSY
     Dosage: UNK

REACTIONS (2)
  - Drug interaction [None]
  - Narcolepsy [Unknown]
